FAERS Safety Report 11713329 (Version 1)
Quarter: 2015Q4

REPORT INFORMATION
  Report Type: Spontaneous
  Country: BR (occurrence: BR)
  Receive Date: 20151109
  Receipt Date: 20151109
  Transmission Date: 20160304
  Serious: Yes (Other)
  Sender: FDA-Public Use
  Company Number: BR-ACCORD-034965

PATIENT
  Age: 55 Year
  Sex: Female
  Weight: 66.7 kg

DRUGS (5)
  1. PACLITAXEL/PACLITAXEL LIPOSOME [Suspect]
     Active Substance: PACLITAXEL
     Indication: LUNG CARCINOMA CELL TYPE UNSPECIFIED STAGE 0
     Dosage: 80 MG/M2 (135 MG)
     Route: 042
     Dates: start: 20150929, end: 20151020
  2. ONDANSETRON [Concomitant]
     Active Substance: ONDANSETRON
     Dosage: 10MG/1 AMPOULE
     Route: 042
     Dates: start: 20151020, end: 20151020
  3. RANITIDINE [Concomitant]
     Active Substance: RANITIDINE\RANITIDINE HYDROCHLORIDE
     Dosage: 50 MG / 2ML, 1 AMPOULE
     Route: 042
     Dates: start: 20151020, end: 20151020
  4. DIPHENHYDRAMINE. [Concomitant]
     Active Substance: DIPHENHYDRAMINE
     Dosage: S.F 100 ML WITH DIFENIDRIN?1 AMPOULE
     Route: 042
     Dates: start: 20151020, end: 20151020
  5. DEXAMETHASONE. [Concomitant]
     Active Substance: DEXAMETHASONE
     Dosage: 10MG/1 AMPOULE
     Route: 042
     Dates: start: 20151020, end: 20151020

REACTIONS (9)
  - Neck pain [Recovered/Resolved]
  - Tachycardia [Recovered/Resolved]
  - Hypoxia [Recovered/Resolved]
  - Decreased appetite [Recovered/Resolved]
  - Cyanosis [Recovered/Resolved]
  - Hypertension [Recovered/Resolved]
  - Asthenia [Recovered/Resolved]
  - Back pain [Recovered/Resolved]
  - Dyspnoea [Recovered/Resolved]

NARRATIVE: CASE EVENT DATE: 20150929
